FAERS Safety Report 7013632-1 (Version None)
Quarter: 2010Q3

REPORT INFORMATION
  Report Type: 
  Country: None (occurrence: None)
  Receive Date: 20100924
  Receipt Date: 20100914
  Transmission Date: 20110219
  Serious: Yes (Death, Other)
  Sender: FDA-Public Use
  Company Number: US-PFIZER INC-2010091299

PATIENT
  Sex: Male
  Weight: 100.23 kg

DRUGS (8)
  1. REVATIO [Suspect]
     Indication: PULMONARY ARTERIAL HYPERTENSION
     Dosage: 20 MG, 3X/DAY
     Route: 048
     Dates: start: 20080501
  2. TREPROSTINIL SODIUM [Suspect]
     Dosage: 18 UG, 4X/DAY
  3. WARFARIN [Concomitant]
     Dosage: 5 MG, ALTERNATE DAYS, ON TUESDAYS AND THURSDAYS
  4. BUMETANIDE [Concomitant]
     Dosage: 4 MG, 2X/DAY FOR 7 DAYS
  5. BUMETANIDE [Concomitant]
     Dosage: 2 MG, 2X/DAY
  6. DIGOXIN [Concomitant]
     Dosage: 0.25 MG, 1X/DAY
     Route: 048
  7. POTASSIUM CHLORIDE [Concomitant]
     Dosage: 20 MEQ, 2X/DAY
     Route: 048
  8. OMEPRAZOLE [Concomitant]
     Dosage: 20 MG, 1X/DAY, EVERY MORNING
     Route: 048

REACTIONS (16)
  - ARTHRALGIA [None]
  - ASCITES [None]
  - ASTHMA [None]
  - CATHETERISATION CARDIAC [None]
  - COR PULMONALE [None]
  - DEATH [None]
  - ECHOCARDIOGRAM ABNORMAL [None]
  - ELECTROCARDIOGRAM ABNORMAL [None]
  - HEPATIC CONGESTION [None]
  - HYPOKALAEMIA [None]
  - INTESTINAL CONGESTION [None]
  - OEDEMA PERIPHERAL [None]
  - RIGHT VENTRICULAR FAILURE [None]
  - SLEEP APNOEA SYNDROME [None]
  - TYPE 2 DIABETES MELLITUS [None]
  - UPPER RESPIRATORY TRACT INFECTION [None]
